FAERS Safety Report 20223938 (Version 2)
Quarter: 2022Q2

REPORT INFORMATION
  Report Type: Spontaneous
  Country: JP (occurrence: None)
  Receive Date: 20211223
  Receipt Date: 20220527
  Transmission Date: 20220720
  Serious: Yes (Hospitalization)
  Sender: FDA-Public Use
  Company Number: 2021A882864

PATIENT
  Age: 67 Year
  Sex: Male
  Weight: 73 kg

DRUGS (9)
  1. DAPAGLIFLOZIN [Suspect]
     Active Substance: DAPAGLIFLOZIN
     Indication: Type 2 diabetes mellitus
     Dosage: AFTER BREAKFAST
     Route: 048
  2. YERVOY [Suspect]
     Active Substance: IPILIMUMAB
     Indication: Lung adenocarcinoma
     Dosage: DOSE UNKNOWN
     Route: 041
     Dates: start: 20201215
  3. OPDIVO [Suspect]
     Active Substance: NIVOLUMAB
     Indication: Lung adenocarcinoma
     Dosage: DOSE UNKNOWN
     Route: 041
     Dates: start: 20201215
  4. ATORVASTATIN [Concomitant]
     Active Substance: ATORVASTATIN
     Dosage: AFTER BREAKFAST
     Route: 048
  5. AMARYL [Concomitant]
     Active Substance: GLIMEPIRIDE
     Dosage: AFTER BREAKFAST
     Route: 048
  6. CARBOPLATIN [Concomitant]
     Active Substance: CARBOPLATIN
     Indication: Lung adenocarcinoma
     Dosage: DOSE UNKNOWN
     Route: 065
     Dates: start: 20201215
  7. PEMETREXED [Concomitant]
     Active Substance: PEMETREXED
     Indication: Lung adenocarcinoma
     Dosage: DOSE UNKNOWN
     Route: 065
     Dates: start: 20201215
  8. METGLUCO [Concomitant]
     Active Substance: METFORMIN HYDROCHLORIDE
     Dosage: AFTER BREAKFAST AND EVENING MEAL
     Route: 065
     Dates: start: 20210622
  9. INSULIN NOS [Concomitant]
     Active Substance: INSULIN NOS
     Indication: Type 2 diabetes mellitus
     Dosage: DOSE UNKNOWN
     Route: 065

REACTIONS (5)
  - Adrenal insufficiency [Unknown]
  - Hypopituitarism [Unknown]
  - Thyroiditis [Unknown]
  - Rash [Unknown]
  - Obesity [Unknown]

NARRATIVE: CASE EVENT DATE: 20210601
